FAERS Safety Report 4770701-4 (Version None)
Quarter: 2005Q3

REPORT INFORMATION
  Report Type: 
  Country: None (occurrence: None)
  Receive Date: 20050915
  Receipt Date: 20050627
  Transmission Date: 20060218
  Serious: Yes (Hospitalization, Disabling)
  Sender: FDA-Public Use
  Company Number: US-MERCK-0506USA03989

PATIENT
  Age: 48 Year
  Sex: Male
  Weight: 86 kg

DRUGS (16)
  1. VIOXX [Suspect]
     Indication: ARTHRALGIA
     Route: 048
     Dates: start: 20020406, end: 20020829
  2. VIOXX [Suspect]
     Route: 048
     Dates: start: 20030410, end: 20030616
  3. AMARYL [Concomitant]
     Route: 065
  4. CEPHALEXIN [Concomitant]
     Route: 065
  5. LACTULOSE [Concomitant]
     Route: 065
  6. TEMAZEPAM [Concomitant]
     Route: 065
  7. GLUCOTROL [Concomitant]
     Route: 065
  8. ACTOS [Concomitant]
     Route: 065
  9. VICODIN [Concomitant]
     Route: 065
  10. ACETAMINOPHEN AND OXYCODONE HYDROCHLORIDE [Concomitant]
     Route: 065
  11. ENDOCET [Concomitant]
     Route: 065
  12. FLOVENT [Concomitant]
     Indication: ASTHMA
     Route: 065
  13. GUAIFENESIN [Concomitant]
     Route: 065
  14. ULTRACET [Concomitant]
     Route: 065
  15. BIAXIN [Concomitant]
     Route: 065
  16. ACETAMINOPHEN [Concomitant]
     Indication: ARTHRALGIA
     Route: 065
     Dates: start: 20030522, end: 20030721

REACTIONS (9)
  - ACUTE MYOCARDIAL INFARCTION [None]
  - ARTHROPATHY [None]
  - BLOOD CHOLESTEROL INCREASED [None]
  - CARDIAC FAILURE [None]
  - CORONARY ARTERY DISEASE [None]
  - HERNIA [None]
  - HYPERTENSION [None]
  - MITRAL VALVE INCOMPETENCE [None]
  - OEDEMA [None]
